FAERS Safety Report 19785234 (Version 1)
Quarter: 2021Q3

REPORT INFORMATION
  Report Type: Spontaneous
  Country: GB (occurrence: GB)
  Receive Date: 20210903
  Receipt Date: 20210903
  Transmission Date: 20211014
  Serious: Yes (Death)
  Sender: FDA-Public Use
  Company Number: GB-SHIONOGI, INC-2021000313

PATIENT
  Age: 64 Year
  Sex: Female

DRUGS (6)
  1. FETROJA [Suspect]
     Active Substance: CEFIDEROCOL SULFATE TOSYLATE
     Indication: SEPSIS
     Dosage: 2 G, TID
     Route: 042
     Dates: start: 202106
  2. AMIKACIN. [Concomitant]
     Active Substance: AMIKACIN
     Indication: PSEUDOMONAS INFECTION
  3. FETROJA [Suspect]
     Active Substance: CEFIDEROCOL SULFATE TOSYLATE
     Indication: PSEUDOMONAS INFECTION
  4. FETROJA [Suspect]
     Active Substance: CEFIDEROCOL SULFATE TOSYLATE
     Indication: BACTERIAL INFECTION
  5. AMIKACIN. [Concomitant]
     Active Substance: AMIKACIN
     Indication: BACTERIAL INFECTION
  6. AMIKACIN. [Concomitant]
     Active Substance: AMIKACIN
     Indication: SEPSIS
     Dosage: UNK
     Route: 065

REACTIONS (1)
  - Condition aggravated [Fatal]

NARRATIVE: CASE EVENT DATE: 202106
